FAERS Safety Report 5244982-7 (Version None)
Quarter: 2007Q1

REPORT INFORMATION
  Report Type: 
  Country: None (occurrence: None)
  Receive Date: 20070221
  Receipt Date: 20070221
  Transmission Date: 20070707
  Serious: Yes (Hospitalization)
  Sender: FDA-Public Use
  Company Number: None

PATIENT
  Age: 19 Year
  Sex: Female
  Weight: 79.3795 kg

DRUGS (1)
  1. MEDROXYPROGESTERONE ACETATE 150 MG DIFFERENT MANUFACTURERS [Suspect]
     Indication: ENDOMETRIOSIS
     Dosage: 150 MG EVERY 90 DAYS IM
     Route: 030
     Dates: start: 20050801, end: 20060601

REACTIONS (2)
  - KIDNEY INFECTION [None]
  - PYELONEPHRITIS [None]
